FAERS Safety Report 8383631-6 (Version None)
Quarter: 2012Q1

REPORT INFORMATION
  Report Type: 
  Country: None (occurrence: None)
  Receive Date: 20120323
  Receipt Date: 20110803
  Transmission Date: 20120608
  Serious: Yes (Disabling, Other)
  Sender: FDA-Public Use
  Company Number: 163-21880-11032378

PATIENT
  Age: 75 Year
  Sex: Male
  Weight: 80.7403 kg

DRUGS (9)
  1. PACKED RED BLOOD CELLS (BLOOD CELLS, PACKED HUMAN) [Concomitant]
  2. FLURAZEPAM (FLURAZPEMA) [Concomitant]
  3. ZOFRAN [Concomitant]
  4. MULTIVITAMIN [Concomitant]
  5. LORAZEPAM [Concomitant]
  6. PALMETTO (SERENOA REPENS) [Concomitant]
  7. COMPAZINE [Concomitant]
  8. REVLIMID [Suspect]
     Indication: MYELODYSPLASTIC SYNDROME
     Dosage: 5 MG, 1 IN 1 D, PO
     Route: 048
     Dates: start: 20060401, end: 20110616
  9. METOPROLOL TARTRATE [Concomitant]

REACTIONS (3)
  - MYELODYSPLASTIC SYNDROME TRANSFORMATION [None]
  - ACUTE MYELOID LEUKAEMIA [None]
  - PLATELET COUNT DECREASED [None]
